FAERS Safety Report 9422152 (Version 1)
Quarter: 2013Q3

REPORT INFORMATION
  Report Type: Spontaneous
  Country: FR (occurrence: FR)
  Receive Date: 20130726
  Receipt Date: 20130726
  Transmission Date: 20140515
  Serious: Yes (Hospitalization)
  Sender: FDA-Public Use
  Company Number: FR-B.I. PHARMACEUTICALS,INC./RIDGEFIELD-2013-FF-01911FF

PATIENT
  Age: 82 Year
  Sex: Male

DRUGS (5)
  1. PRADAXA [Suspect]
     Indication: ATRIAL FIBRILLATION
     Dosage: 220 MG
     Route: 048
     Dates: start: 201212
  2. DIAMICRON [Concomitant]
  3. METFORMINE [Concomitant]
  4. SIMVASTATINE [Concomitant]
  5. ACEBUTOLOL [Concomitant]
     Route: 048

REACTIONS (1)
  - Hypersensitivity vasculitis [Not Recovered/Not Resolved]
